FAERS Safety Report 15178030 (Version 1)
Quarter: 2018Q3

REPORT INFORMATION
  Report Type: Spontaneous
  Country: US (occurrence: US)
  Receive Date: 20180721
  Receipt Date: 20180721
  Transmission Date: 20181010
  Serious: No
  Sender: FDA-Public Use
  Company Number: US-B.I. PHARMACEUTICALS,INC./RIDGEFIELD-2018-BI-037317

PATIENT
  Age: 53 Year
  Sex: Female

DRUGS (3)
  1. JARDIANCE [Suspect]
     Active Substance: EMPAGLIFLOZIN
     Indication: TYPE 2 DIABETES MELLITUS
     Dosage: ONCE DAILY;  FORMULATION: TABLET; ? ?ACTION(S) TAKEN WITH PRODUCT: DOSE NOT CHANGED
     Route: 048
     Dates: start: 201806
  2. COZAAR HCT [Concomitant]
     Indication: HYPERTENSION
     Route: 065
  3. QUESTRAN [Concomitant]
     Active Substance: CHOLESTYRAMINE
     Indication: CROHN^S DISEASE
     Route: 065

REACTIONS (5)
  - Contusion [Not Recovered/Not Resolved]
  - Blood glucose increased [Recovered/Resolved]
  - Fall [Recovered/Resolved]
  - Blood glucose normal [Not Recovered/Not Resolved]
  - Insomnia [Not Recovered/Not Resolved]

NARRATIVE: CASE EVENT DATE: 2018
